FAERS Safety Report 6890097-1 (Version None)
Quarter: 2010Q3

REPORT INFORMATION
  Report Type: 
  Country: None (occurrence: None)
  Receive Date: 20100730
  Receipt Date: 20080725
  Transmission Date: 20110219
  Serious: No
  Sender: FDA-Public Use
  Company Number: US-PFIZER INC-2008062907

PATIENT
  Sex: Female
  Weight: 82.727 kg

DRUGS (2)
  1. LIPITOR [Suspect]
     Indication: HIGH DENSITY LIPOPROTEIN DECREASED
     Route: 048
     Dates: start: 20070301, end: 20080724
  2. LABETALOL HCL [Concomitant]
     Indication: HYPERTENSION

REACTIONS (1)
  - RASH [None]
